FAERS Safety Report 22255750 (Version 1)
Quarter: 2023Q2

REPORT INFORMATION
  Report Type: Report from Study
  Country: US (occurrence: US)
  Receive Date: 20230426
  Receipt Date: 20230426
  Transmission Date: 20230721
  Serious: Yes (Other)
  Sender: FDA-Public Use
  Company Number: US-ABBVIE-4740833

PATIENT
  Age: 73 Year
  Sex: Female

DRUGS (1)
  1. HUMIRA [Suspect]
     Active Substance: ADALIMUMAB
     Indication: Crohn^s disease
     Route: 058

REACTIONS (5)
  - Renal failure [Recovering/Resolving]
  - Cognitive disorder [Recovered/Resolved]
  - Pancreatic disorder [Recovered/Resolved]
  - Pneumonia [Recovered/Resolved]
  - Catheter placement [Recovering/Resolving]

NARRATIVE: CASE EVENT DATE: 20230201
